FAERS Safety Report 7252169-1 (Version None)
Quarter: 2011Q1

REPORT INFORMATION
  Report Type: 
  Country: None (occurrence: None)
  Receive Date: 20110129
  Receipt Date: 20100416
  Transmission Date: 20110831
  Serious: No
  Sender: FDA-Public Use
  Company Number: US-ABBOTT-10P-163-0639173-00

PATIENT
  Sex: Male

DRUGS (2)
  1. HUMIRA [Suspect]
     Dates: start: 20100102
  2. HUMIRA [Suspect]
     Indication: CROHN'S DISEASE
     Dates: start: 20091001

REACTIONS (4)
  - OEDEMA PERIPHERAL [None]
  - MOBILITY DECREASED [None]
  - PAIN IN EXTREMITY [None]
  - TRIGGER FINGER [None]
